FAERS Safety Report 5846857-9 (Version None)
Quarter: 2008Q3

REPORT INFORMATION
  Report Type: 
  Country: None (occurrence: None)
  Receive Date: 20080815
  Receipt Date: 20080808
  Transmission Date: 20090109
  Serious: Yes (Other)
  Sender: FDA-Public Use
  Company Number: PHHY2008GB18002

PATIENT
  Age: 32 Year
  Sex: Male

DRUGS (1)
  1. TEGRETOL [Suspect]
     Dosage: 600 MG MORNING,500 MG NIGHT

REACTIONS (2)
  - ANTICONVULSANT DRUG LEVEL INCREASED [None]
  - INTENTIONAL OVERDOSE [None]
